FAERS Safety Report 15084874 (Version 7)
Quarter: 2019Q1

REPORT INFORMATION
  Report Type: Spontaneous
  Country: DE (occurrence: DE)
  Receive Date: 20180628
  Receipt Date: 20190220
  Transmission Date: 20190417
  Serious: Yes (Hospitalization, Disabling, Other)
  Sender: FDA-Public Use
  Company Number: DE-SA-2018SA120297

PATIENT
  Age: 81 Year
  Sex: Male

DRUGS (15)
  1. PRALUENT [Suspect]
     Active Substance: ALIROCUMAB
     Indication: HYPERCHOLESTEROLAEMIA
     Dosage: 75 MG,QOW
     Route: 058
     Dates: start: 20180312, end: 20180403
  2. ZOLPIDEM [Concomitant]
     Active Substance: ZOLPIDEM\ZOLPIDEM TARTRATE
     Indication: SLEEP DISORDER
     Dosage: 5 MG, PRN
     Route: 048
  3. METROCREAM [Concomitant]
     Active Substance: METRONIDAZOLE
     Dosage: 1 DF, BID
  4. SIMVASTATIN. [Concomitant]
     Active Substance: SIMVASTATIN
  5. ALIROCUMAB PREFILLED PEN [Suspect]
     Active Substance: ALIROCUMAB
     Dosage: 225 MG, TOTAL
     Route: 058
  6. OMEP [OMEPRAZOLE] [Concomitant]
     Indication: PROPHYLAXIS AGAINST GASTROINTESTINAL ULCER
     Dosage: 20 MG, QD
     Route: 048
  7. MARCUMAR [Concomitant]
     Active Substance: PHENPROCOUMON
     Indication: ATRIAL FIBRILLATION
     Route: 048
  8. BISOPROLOL [Concomitant]
     Active Substance: BISOPROLOL
     Indication: CORONARY ARTERY DISEASE
     Dosage: 10 MG, QD
     Route: 048
  9. TILIDIN N [Concomitant]
     Active Substance: NALOXONE HYDROCHLORIDE\TILIDINE HYDROCHLORIDE
     Dosage: 20 GTT DROPS, QID
  10. ASPIRIN. [Concomitant]
     Active Substance: ASPIRIN
     Indication: CORONARY ARTERY DISEASE
     Dosage: 100 MG, QD
     Route: 048
  11. BECLOMETASONE DIPROPIONATE;FORMOTEROL FUMARATE [Concomitant]
     Indication: ASTHMA
     Dosage: 2 DF, QOD
     Route: 055
  12. DYMISTA [Concomitant]
     Active Substance: AZELASTINE HYDROCHLORIDE\FLUTICASONE PROPIONATE
     Dosage: 1 DF, QD
  13. FINASTERID [Concomitant]
     Active Substance: FINASTERIDE
     Dosage: 1 DF
  14. ALIROCUMAB PREFILLED PEN [Suspect]
     Active Substance: ALIROCUMAB
     Indication: HYPERCHOLESTEROLAEMIA
     Dosage: 75 MG, QOW
     Route: 058
     Dates: start: 20180312, end: 20180403
  15. CLEXANE [Concomitant]
     Active Substance: ENOXAPARIN SODIUM
     Dosage: 1 DF, QD

REACTIONS (13)
  - Tendon rupture [Not Recovered/Not Resolved]
  - Pain [Not Recovered/Not Resolved]
  - Erysipelas [Recovered/Resolved]
  - Pain in extremity [Not Recovered/Not Resolved]
  - Implant site abscess [Recovered/Resolved]
  - Pain in extremity [Not Recovered/Not Resolved]
  - Skin discolouration [Not Recovered/Not Resolved]
  - Staphylococcal infection [Recovered/Resolved]
  - Condition aggravated [Not Recovered/Not Resolved]
  - Oedema peripheral [Unknown]
  - Peripheral swelling [Not Recovered/Not Resolved]
  - Mobility decreased [Recovering/Resolving]
  - Pain in extremity [Not Recovered/Not Resolved]

NARRATIVE: CASE EVENT DATE: 201804
